FAERS Safety Report 16672802 (Version 5)
Quarter: 2019Q3

REPORT INFORMATION
  Report Type: Spontaneous
  Country: US (occurrence: US)
  Receive Date: 20190806
  Receipt Date: 20190903
  Transmission Date: 20191004
  Serious: Yes (Hospitalization)
  Sender: FDA-Public Use
  Company Number: US-CELGENEUS-USA-20190711361

PATIENT
  Age: 65 Year
  Sex: Female
  Weight: 57.3 kg

DRUGS (9)
  1. PROCHLORPERAZINE EDISYLATE. [Concomitant]
     Active Substance: PROCHLORPERAZINE EDISYLATE
     Indication: NAUSEA
     Dosage: 10 MILLIGRAM
     Route: 048
     Dates: start: 20190530
  2. SALBUTAMOL [Concomitant]
     Active Substance: ALBUTEROL
     Indication: CHRONIC OBSTRUCTIVE PULMONARY DISEASE
     Dosage: 2 PUFFS
     Route: 055
     Dates: start: 20181019
  3. VENETOCLAX. [Suspect]
     Active Substance: VENETOCLAX
     Indication: MYELODYSPLASTIC SYNDROME
     Dosage: 400 MILLIGRAM
     Route: 048
     Dates: start: 20190712, end: 20190722
  4. EUCERIN [Concomitant]
     Active Substance: ENSULIZOLE\EUCERIN\OCTINOXATE\OCTISALATE\TITANIUM DIOXIDE\ZINC OXIDE
     Indication: PRURITUS
     Route: 061
     Dates: start: 20190712
  5. AMINOCAPROIC ACID. [Concomitant]
     Active Substance: AMINOCAPROIC ACID
     Indication: FULL BLOOD COUNT DECREASED
     Route: 065
     Dates: start: 20190722
  6. NICOTINE. [Concomitant]
     Active Substance: NICOTINE
     Indication: SMOKING CESSATION THERAPY
     Route: 062
     Dates: start: 20190712
  7. CLINDAMYCIN PHOSPHATE. [Concomitant]
     Active Substance: CLINDAMYCIN PHOSPHATE
     Indication: SKIN INFECTION
     Route: 061
     Dates: start: 20190725
  8. LEVAQUIN [Concomitant]
     Active Substance: LEVOFLOXACIN
     Indication: FOLLICULITIS
     Dosage: 750 MILLIGRAM
     Route: 048
     Dates: start: 20190724
  9. VIDAZA [Suspect]
     Active Substance: AZACITIDINE
     Indication: MYELODYSPLASTIC SYNDROME
     Dosage: 75 MILLIGRAM/SQ. METER
     Route: 058
     Dates: start: 20190712

REACTIONS (3)
  - Epistaxis [Recovered/Resolved]
  - Thrombocytopenia [Recovered/Resolved]
  - Dyspnoea [Recovered/Resolved]

NARRATIVE: CASE EVENT DATE: 20190722
